FAERS Safety Report 17460706 (Version 1)
Quarter: 2020Q1

REPORT INFORMATION
  Report Type: Spontaneous
  Country: US (occurrence: US)
  Receive Date: 20200225
  Receipt Date: 20200225
  Transmission Date: 20200409
  Serious: Yes (Disabling, Other)
  Sender: FDA-Public Use
  Company Number: None

PATIENT
  Age: 61 Year
  Sex: Male
  Weight: 85.5 kg

DRUGS (8)
  1. METFORMIN [Concomitant]
     Active Substance: METFORMIN HYDROCHLORIDE
  2. AVORVASTATIN [Concomitant]
  3. VITAMIN C [Concomitant]
     Active Substance: ASCORBIC ACID
  4. OZEMPIC [Suspect]
     Active Substance: SEMAGLUTIDE
     Indication: TYPE 2 DIABETES MELLITUS
     Dosage: ?          QUANTITY:.25 MG;OTHER FREQUENCY:1 TIME PER WEEK;OTHER ROUTE:INJECTION?
     Route: 058
  5. ENALAPRIL [Concomitant]
     Active Substance: ENALAPRIL
  6. VIT D [Concomitant]
     Active Substance: VITAMIN D NOS
  7. LATANAOPROST [Concomitant]
  8. FISH OIL [Concomitant]
     Active Substance: FISH OIL

REACTIONS (6)
  - Faeces discoloured [None]
  - Steatorrhoea [None]
  - Abdominal pain [None]
  - Defaecation urgency [None]
  - Wheezing [None]
  - Flatulence [None]

NARRATIVE: CASE EVENT DATE: 20191121
